FAERS Safety Report 10240973 (Version 1)
Quarter: 2014Q2

REPORT INFORMATION
  Report Type: Spontaneous
  Country: CL (occurrence: CL)
  Receive Date: 20140617
  Receipt Date: 20140617
  Transmission Date: 20141212
  Serious: Yes (Hospitalization)
  Sender: FDA-Public Use
  Company Number: CL-JNJFOC-20140607421

PATIENT
  Age: 44 Year
  Sex: Male
  Weight: 70 kg

DRUGS (4)
  1. SIMPONI [Suspect]
     Indication: ANKYLOSING SPONDYLITIS
     Route: 058
     Dates: start: 20130212
  2. OMEPRAZOLE [Concomitant]
     Route: 065
  3. CELEBRA [Concomitant]
     Route: 065
  4. DICLOFENAC [Concomitant]
     Route: 065

REACTIONS (1)
  - Osteoma [Recovered/Resolved]
